FAERS Safety Report 6075232-X (Version None)
Quarter: 2009Q1

REPORT INFORMATION
  Report Type: 
  Country: None (occurrence: None)
  Receive Date: 20090212
  Receipt Date: 20090205
  Transmission Date: 20090719
  Serious: Yes (Other)
  Sender: FDA-Public Use
  Company Number: US-BIOGENIDEC-2007BI016434

PATIENT
  Age: 28 Year
  Sex: Female

DRUGS (5)
  1. AVONEX [Suspect]
     Indication: MULTIPLE SCLEROSIS
     Dosage: BASED ON ULTRASOUND
     Route: 030
     Dates: start: 20030101, end: 20070211
  2. AVONEX [Suspect]
     Route: 030
     Dates: start: 20020101, end: 20030101
  3. LEXAPRO [Concomitant]
     Indication: ANXIETY
     Route: 048
  4. PRENATAL VITS [Concomitant]
     Indication: SUPPLEMENTATION THERAPY
     Route: 048
     Dates: start: 20070226
  5. CALTRATE+D [Concomitant]
     Indication: SUPPLEMENTATION THERAPY
     Route: 048
     Dates: start: 20070226

REACTIONS (1)
  - BREECH PRESENTATION [None]
